FAERS Safety Report 18994580 (Version 7)
Quarter: 2023Q2

REPORT INFORMATION
  Report Type: Report from Study
  Country: US (occurrence: US)
  Receive Date: 20210310
  Receipt Date: 20230404
  Transmission Date: 20230722
  Serious: No
  Sender: FDA-Public Use
  Company Number: NVSC2021US044629

PATIENT
  Age: 65 Year
  Sex: Male

DRUGS (1)
  1. KESIMPTA [Suspect]
     Active Substance: OFATUMUMAB
     Indication: Relapsing multiple sclerosis
     Dosage: 20 MG, QW
     Route: 058
     Dates: start: 20210130

REACTIONS (4)
  - Weight decreased [Recovering/Resolving]
  - Nausea [Recovering/Resolving]
  - Vomiting [Recovering/Resolving]
  - Headache [Recovering/Resolving]

NARRATIVE: CASE EVENT DATE: 20210130
